FAERS Safety Report 4321034-1 (Version None)
Quarter: 2004Q1

REPORT INFORMATION
  Report Type: 
  Country: None (occurrence: None)
  Receive Date: 20040315
  Receipt Date: 20030715
  Transmission Date: 20041129
  Serious: Yes (Other)
  Sender: FDA-Public Use
  Company Number: PHEH2003US06319

PATIENT
  Age: 48 Year
  Sex: Male
  Weight: 67.1 kg

DRUGS (3)
  1. TRILEPTAL [Suspect]
     Indication: CONVULSION
     Dosage: 150 MG, BID, ORAL
     Route: 048
     Dates: start: 20030710
  2. HYDROCHLOROTHIAZIDE [Concomitant]
  3. LAMISIL [Concomitant]

REACTIONS (1)
  - HYPERTENSION [None]
